FAERS Safety Report 23155970 (Version 2)
Quarter: 2023Q4

REPORT INFORMATION
  Report Type: Spontaneous
  Country: US (occurrence: US)
  Receive Date: 20231107
  Receipt Date: 20231220
  Transmission Date: 20240109
  Serious: Yes (Other)
  Sender: FDA-Public Use
  Company Number: US-PFIZER INC-202300353435

PATIENT
  Age: 40 Year
  Sex: Female
  Weight: 99.79 kg

DRUGS (2)
  1. KETAMINE HYDROCHLORIDE [Suspect]
     Active Substance: KETAMINE HYDROCHLORIDE
     Indication: Depression
     Dosage: UNK, 2X/WEEK (FOR 3 WEEKS)
     Route: 042
     Dates: start: 202210, end: 202305
  2. VILAZODONE [Concomitant]
     Active Substance: VILAZODONE
     Dosage: UNK
     Dates: start: 202301

REACTIONS (6)
  - Brain injury [Not Recovered/Not Resolved]
  - Cerebral disorder [Not Recovered/Not Resolved]
  - Amnesia [Unknown]
  - Irritability [Unknown]
  - Cognitive disorder [Unknown]
  - Off label use [Unknown]

NARRATIVE: CASE EVENT DATE: 20221001
